FAERS Safety Report 5072453-X (Version None)
Quarter: 2006Q3

REPORT INFORMATION
  Report Type: 
  Country: None (occurrence: None)
  Receive Date: 20060710
  Receipt Date: 20050912
  Transmission Date: 20061208
  Serious: Yes (Other)
  Sender: FDA-Public Use
  Company Number: 2005US001271

PATIENT
  Age: 70 Year
  Sex: Male
  Weight: 79.4 kg

DRUGS (1)
  1. ADENOSCAN [Suspect]
     Indication: SCAN MYOCARDIAL PERFUSION
     Dosage: 66.3 MG, TOTAL DOSE, IV NOS
     Route: 042
     Dates: start: 20050902, end: 20050902

REACTIONS (2)
  - CHEST DISCOMFORT [None]
  - TREMOR [None]
